FAERS Safety Report 23255770 (Version 1)
Quarter: 2023Q4

REPORT INFORMATION
  Report Type: Spontaneous
  Country: FR (occurrence: FR)
  Receive Date: 20231204
  Receipt Date: 20231204
  Transmission Date: 20240110
  Serious: Yes (Hospitalization, Other)
  Sender: FDA-Public Use
  Company Number: None

PATIENT

DRUGS (6)
  1. IBUPROFEN [Suspect]
     Active Substance: IBUPROFEN
     Indication: Poisoning deliberate
     Dosage: 2.4 G, TOTAL (6 TABS AT 400 MG)
     Dates: start: 20231115, end: 20231115
  2. IBUPROFEN [Suspect]
     Active Substance: IBUPROFEN
     Dosage: 9.6 G, TOTAL (2 PLATELETS)
     Dates: start: 20231116, end: 20231116
  3. DOLIPRANE [Suspect]
     Active Substance: ACETAMINOPHEN
     Indication: Poisoning deliberate
     Dosage: 8 G, TOTAL
     Dates: start: 20231116, end: 20231116
  4. SERTRALINE HYDROCHLORIDE [Suspect]
     Active Substance: SERTRALINE HYDROCHLORIDE
     Indication: Poisoning deliberate
     Dosage: 250 MG,TOTAL
     Dates: start: 20231115, end: 20231115
  5. SERTRALINE HYDROCHLORIDE [Suspect]
     Active Substance: SERTRALINE HYDROCHLORIDE
     Dosage: 250 MG, TOTAL
     Dates: start: 20231116, end: 20231116
  6. DOLIPRANE [Suspect]
     Active Substance: ACETAMINOPHEN
     Indication: Poisoning deliberate
     Dosage: 8 G, TOTAL
     Dates: start: 20231116, end: 20231116

REACTIONS (7)
  - Syncope [Recovered/Resolved]
  - Chest pain [Recovered/Resolved]
  - Headache [Recovered/Resolved]
  - Abdominal pain [Recovered/Resolved]
  - Vomiting [Recovered/Resolved]
  - Somnolence [Recovered/Resolved]
  - Toxicity to various agents [Recovered/Resolved]

NARRATIVE: CASE EVENT DATE: 20231116
